FAERS Safety Report 23510295 (Version 1)
Quarter: 2024Q1

REPORT INFORMATION
  Report Type: Spontaneous
  Country: US (occurrence: US)
  Receive Date: 20240211
  Receipt Date: 20240211
  Transmission Date: 20240409
  Serious: No
  Sender: FDA-Public Use
  Company Number: US-AIMMUNE THERAPEUTICS, INC.-2023AIMT00113

PATIENT

DRUGS (6)
  1. PALFORZIA [Suspect]
     Active Substance: PEANUT
     Indication: Food allergy
     Dosage: IDE (0.5MG-6MG), ONCE
     Route: 048
     Dates: start: 20230110, end: 20230110
  2. PALFORZIA [Suspect]
     Active Substance: PEANUT
     Dosage: 6 MG, 1X/DAY
     Route: 048
     Dates: start: 20230124, end: 20230131
  3. PALFORZIA [Suspect]
     Active Substance: PEANUT
     Dosage: 6 MG, ONCE, LAST DOSE PRIOR MISSED DOSE AND OVERDOSE
     Route: 048
     Dates: start: 20230131, end: 20230131
  4. PALFORZIA [Suspect]
     Active Substance: PEANUT
     Dosage: 6 MG, TWICE, PRIOR DIARRHEA
     Route: 048
     Dates: start: 20230202, end: 20230202
  5. PALFORZIA [Suspect]
     Active Substance: PEANUT
     Dosage: 3 MG, 1X/DAY, DECREASED DOSE
     Route: 048
     Dates: start: 20230203, end: 20230206
  6. PALFORZIA [Suspect]
     Active Substance: PEANUT
     Dosage: 6 MG, 1X/DAY
     Route: 048
     Dates: start: 20230207

REACTIONS (3)
  - Diarrhoea [Recovered/Resolved]
  - Product dose omission issue [Recovered/Resolved]
  - Intentional overdose [Recovered/Resolved]

NARRATIVE: CASE EVENT DATE: 20230201
